FAERS Safety Report 15686813 (Version 5)
Quarter: 2020Q3

REPORT INFORMATION
  Report Type: Spontaneous
  Country: US (occurrence: US)
  Receive Date: 20181204
  Receipt Date: 20200930
  Transmission Date: 20201102
  Serious: Yes (Other)
  Sender: FDA-Public Use
  Company Number: US-PFIZER INC-2018490404

PATIENT
  Age: 61 Year
  Sex: Male
  Weight: 104.33 kg

DRUGS (2)
  1. LYRICA [Suspect]
     Active Substance: PREGABALIN
     Indication: NERVE INJURY
     Dosage: 150 MG, 2X/DAY
     Route: 048
     Dates: start: 2010
  2. TYLENOL WITH CODEINE [Concomitant]
     Active Substance: ACETAMINOPHEN\CODEINE PHOSPHATE
     Indication: PAIN
     Dosage: UNK, AS NEEDED (TWICE A DAY AS NEEDED)
     Route: 048

REACTIONS (7)
  - Product dose omission issue [Unknown]
  - Weight increased [Unknown]
  - Drug dependence [Unknown]
  - Headache [Unknown]
  - Panic attack [Unknown]
  - Anxiety [Unknown]
  - Cold sweat [Unknown]
